FAERS Safety Report 6561988-6 (Version None)
Quarter: 2010Q1

REPORT INFORMATION
  Report Type: 
  Country: None (occurrence: None)
  Receive Date: 20100130
  Receipt Date: 20091105
  Transmission Date: 20100710
  Serious: No
  Sender: FDA-Public Use
  Company Number: US-ABBOTT-09P-163-0596873-00

PATIENT
  Sex: Female
  Weight: 70.37 kg

DRUGS (3)
  1. HUMIRA [Suspect]
     Indication: CROHN'S DISEASE
     Dosage: 160MG; DAY 1
     Dates: start: 20090911
  2. HUMIRA [Suspect]
  3. ALBUTEROL [Concomitant]
     Indication: ASTHMA
     Dates: start: 20090911, end: 20090911

REACTIONS (3)
  - FATIGUE [None]
  - UPPER RESPIRATORY TRACT CONGESTION [None]
  - WHEEZING [None]
